FAERS Safety Report 8780756 (Version 1)
Quarter: 2012Q4

REPORT INFORMATION
  Report Type: 
  Country: US (occurrence: US)
  Receive Date: 20120913
  Receipt Date: 20120913
  Transmission Date: 20130627
  Serious: No
  Sender: FDA-Public Use
  Company Number: US-ASTRAZENECA-2011SE37826

PATIENT
  Age: 53 Year
  Sex: Male

DRUGS (7)
  1. NEXIUM [Suspect]
     Route: 048
  2. OMEPRAZOLE [Suspect]
     Route: 048
  3. SIMVASTATIN [Concomitant]
  4. DIOVAN [Concomitant]
  5. GLUCOTROL XL [Concomitant]
  6. FLOMAX [Concomitant]
  7. NOVOLIN [Concomitant]

REACTIONS (5)
  - Chest pain [Unknown]
  - Gastrooesophageal reflux disease [Unknown]
  - Oesophageal food impaction [Unknown]
  - Throat tightness [Unknown]
  - Drug dose omission [Unknown]
